FAERS Safety Report 17718082 (Version 1)
Quarter: 2020Q2

REPORT INFORMATION
  Report Type: Spontaneous
  Country: US (occurrence: US)
  Receive Date: 20200428
  Receipt Date: 20200428
  Transmission Date: 20200714
  Serious: Yes (Hospitalization)
  Sender: FDA-Public Use
  Company Number: None

PATIENT
  Age: 10 Year
  Sex: Female
  Weight: 60.3 kg

DRUGS (19)
  1. CYCLOPHOSPHAMIDE. [Suspect]
     Active Substance: CYCLOPHOSPHAMIDE
     Dates: end: 20200407
  2. CYTARABINE. [Suspect]
     Active Substance: CYTARABINE
     Dates: end: 20200411
  3. THIOGUANINE (6-TG) [Suspect]
     Active Substance: THIOGUANINE ANHYDROUS
     Dates: end: 20200407
  4. CLONIDINE. [Concomitant]
     Active Substance: CLONIDINE
  5. SCOPALAMINE [Concomitant]
     Active Substance: SCOPOLAMINE
  6. HEPARIN [Concomitant]
     Active Substance: HEPARIN SODIUM
  7. TYLENOL [Concomitant]
     Active Substance: ACETAMINOPHEN
  8. VORICONIZOLE [Concomitant]
  9. ZOFRAN [Concomitant]
     Active Substance: ONDANSETRON HYDROCHLORIDE
  10. DEXAMETHASONE. [Suspect]
     Active Substance: DEXAMETHASONE
     Dates: end: 20200114
  11. ATIVAN [Concomitant]
     Active Substance: LORAZEPAM
  12. ETOPOSIDE (VP-16) [Suspect]
     Active Substance: ETOPOSIDE
     Dates: end: 20200407
  13. LIDOCAINE CREAM [Concomitant]
     Active Substance: LIDOCAINE
  14. MERCAPTOPURINE. [Suspect]
     Active Substance: MERCAPTOPURINE
     Dates: end: 20200330
  15. AMLODIPINE [Concomitant]
     Active Substance: AMLODIPINE BESYLATE
  16. MIRALAX [Concomitant]
     Active Substance: POLYETHYLENE GLYCOL 3350
  17. METHOTREXATE. [Suspect]
     Active Substance: METHOTREXATE
     Dates: end: 20200323
  18. VINCRISTINE SULFATE. [Suspect]
     Active Substance: VINCRISTINE SULFATE
     Dates: end: 20200110
  19. ATOVAQUONE. [Concomitant]
     Active Substance: ATOVAQUONE

REACTIONS (10)
  - Klebsiella test positive [None]
  - Febrile neutropenia [None]
  - Blood pressure increased [None]
  - Endocarditis [None]
  - Cardiomyopathy [None]
  - Staphylococcus test positive [None]
  - Scar [None]
  - Tachycardia [None]
  - Hypotension [None]
  - Anaemia [None]

NARRATIVE: CASE EVENT DATE: 20200417
